FAERS Safety Report 8793488 (Version 1)
Quarter: 2012Q4

REPORT INFORMATION
  Report Type: 
  Country: FR (occurrence: FR)
  Receive Date: 20120917
  Receipt Date: 20120917
  Transmission Date: 20130627
  Serious: Yes (Other)
  Sender: FDA-Public Use
  Company Number: FR-ASTRAZENECA-2012SE70555

PATIENT
  Age: 18 Year
  Sex: Female

DRUGS (3)
  1. DIPRIVAN [Suspect]
     Indication: GENERAL ANAESTHESIA
     Dosage: Once/Single administration
     Route: 042
     Dates: start: 201003, end: 201003
  2. SUFENTANIL [Suspect]
     Indication: GENERAL ANAESTHESIA
     Dosage: Once/Single administration
     Route: 042
     Dates: start: 201003, end: 201003
  3. TRACRIUM [Suspect]
     Indication: GENERAL ANAESTHESIA
     Dosage: Once/Single administration
     Route: 042
     Dates: start: 201003, end: 201003

REACTIONS (1)
  - Victim of sexual abuse [Unknown]
